FAERS Safety Report 23506875 (Version 2)
Quarter: 2024Q1

REPORT INFORMATION
  Report Type: Report from Study
  Country: US (occurrence: US)
  Receive Date: 20240209
  Receipt Date: 20240315
  Transmission Date: 20240410
  Serious: Yes (Death, Hospitalization)
  Sender: FDA-Public Use
  Company Number: US-ALNYLAM PHARMACEUTICALS, INC.-ALN-2024-000755

PATIENT

DRUGS (1)
  1. GIVLAARI [Suspect]
     Active Substance: GIVOSIRAN SODIUM
     Indication: Porphyria
     Dosage: UNK
     Route: 065
     Dates: start: 20230829, end: 20230829

REACTIONS (7)
  - Death [Fatal]
  - Bowel movement irregularity [Unknown]
  - Renal failure [Unknown]
  - Feeling abnormal [Unknown]
  - Dysarthria [Unknown]
  - Gait disturbance [Unknown]
  - Hypotension [Unknown]

NARRATIVE: CASE EVENT DATE: 20231201
